FAERS Safety Report 4731323-4 (Version None)
Quarter: 2005Q3

REPORT INFORMATION
  Report Type: 
  Country: None (occurrence: None)
  Receive Date: 20050729
  Receipt Date: 20050713
  Transmission Date: 20060218
  Serious: Yes (Hospitalization)
  Sender: FDA-Public Use
  Company Number: CIO05008631

PATIENT
  Age: 74 Year
  Sex: Female
  Weight: 49 kg

DRUGS (2)
  1. METAMUCIL-2 [Suspect]
     Indication: CONSTIPATION
     Dosage: 5 CAPSUL, 2/DAY, ORAL
     Route: 048
     Dates: end: 20050509
  2. INJECTIONS FOR OSTEOPOROSIS [Concomitant]

REACTIONS (13)
  - BLOOD PRESSURE SYSTOLIC INCREASED [None]
  - CHEST DISCOMFORT [None]
  - DYSPHAGIA [None]
  - DYSPNOEA [None]
  - EAR PAIN [None]
  - FOREIGN BODY TRAUMA [None]
  - OESOPHAGEAL OBSTRUCTION [None]
  - OESOPHAGITIS [None]
  - PAIN [None]
  - PHARMACEUTICAL PRODUCT COMPLAINT [None]
  - PHARYNGOLARYNGEAL PAIN [None]
  - SALIVARY HYPERSECRETION [None]
  - VARICES OESOPHAGEAL [None]
